FAERS Safety Report 4541232-1 (Version None)
Quarter: 2004Q4

REPORT INFORMATION
  Report Type: 
  Country: None (occurrence: None)
  Receive Date: 20041228
  Receipt Date: 20041215
  Transmission Date: 20050328
  Serious: Yes (Death)
  Sender: FDA-Public Use
  Company Number: 1781-096-1

PATIENT
  Age: 69 Year
  Sex: Female

DRUGS (1)
  1. DEXFERRUM [Suspect]
     Indication: ANAEMIA
     Dosage: 100 MG IV DAILY X 4
     Route: 042
     Dates: start: 20041005, end: 20041008

REACTIONS (11)
  - ATRIAL FIBRILLATION [None]
  - ENCEPHALOPATHY [None]
  - GALLBLADDER DISORDER [None]
  - HEPATIC FAILURE [None]
  - HYPOTHYROIDISM [None]
  - MULTI-ORGAN FAILURE [None]
  - OBESITY [None]
  - RENAL FAILURE [None]
  - RESPIRATORY FAILURE [None]
  - SICK SINUS SYNDROME [None]
  - SLEEP APNOEA SYNDROME [None]
